FAERS Safety Report 15839092 (Version 2)
Quarter: 2019Q1

REPORT INFORMATION
  Report Type: Spontaneous
  Country: US (occurrence: US)
  Receive Date: 20190117
  Receipt Date: 20190121
  Transmission Date: 20190417
  Serious: No
  Sender: FDA-Public Use
  Company Number: US-PFIZER INC-2019015542

PATIENT
  Age: 60 Year
  Sex: Male

DRUGS (2)
  1. FLECTOR [Suspect]
     Active Substance: DICLOFENAC EPOLAMINE
     Indication: INTERVERTEBRAL DISC DEGENERATION
     Dosage: 4-5 PATCHES A DAY
     Route: 062
  2. FLECTOR [Suspect]
     Active Substance: DICLOFENAC EPOLAMINE
     Dosage: 1-2 PATCHES PER DAY
     Route: 062

REACTIONS (2)
  - Product use issue [Unknown]
  - Urine alcohol test positive [Not Recovered/Not Resolved]

NARRATIVE: CASE EVENT DATE: 201811
